FAERS Safety Report 6233605-6 (Version None)
Quarter: 2009Q2

REPORT INFORMATION
  Report Type: 
  Country: None (occurrence: None)
  Receive Date: 20090617
  Receipt Date: 20090609
  Transmission Date: 20091009
  Serious: Yes (Other)
  Sender: FDA-Public Use
  Company Number: CA-PFIZER INC-2009199168

PATIENT
  Age: 43 Year

DRUGS (2)
  1. CHAMPIX [Suspect]
     Dosage: UNK
     Dates: start: 20090202, end: 20090411
  2. IBUPROFEN [Concomitant]
     Dosage: UNK

REACTIONS (3)
  - CONVULSION [None]
  - MUSCLE SPASMS [None]
  - MUSCLE TIGHTNESS [None]
